FAERS Safety Report 9767333 (Version 1)
Quarter: 2013Q4

REPORT INFORMATION
  Report Type: Spontaneous
  Country: US (occurrence: None)
  Receive Date: 20131216
  Receipt Date: 20131216
  Transmission Date: 20140711
  Serious: Yes (Other)
  Sender: FDA-Public Use
  Company Number: None

PATIENT
  Age: 22 Year
  Sex: Male

DRUGS (1)
  1. INVEGA SUSTENNA [Suspect]
     Indication: SCHIZOPHRENIA
     Dosage: 156 MG EVERY 4 WEEKS IM
     Route: 030
     Dates: start: 20130208, end: 20131210

REACTIONS (4)
  - Restlessness [None]
  - Weight increased [None]
  - Dysarthria [None]
  - Joint stiffness [None]
